FAERS Safety Report 5376691-8 (Version None)
Quarter: 2007Q2

REPORT INFORMATION
  Report Type: 
  Country: None (occurrence: None)
  Receive Date: 20070629
  Receipt Date: 20070619
  Transmission Date: 20071010
  Serious: Yes (Hospitalization)
  Sender: FDA-Public Use
  Company Number: VISP-PR-0706S-0275

PATIENT
  Sex: Female

DRUGS (2)
  1. VISIPAQUE [Suspect]
     Indication: ARTERIOSCLEROSIS
     Dosage: 100 ML, SINGLE DOSE, I.V.
     Route: 042
     Dates: start: 20070531, end: 20070531
  2. UNSPECIFIED LUPUS IMMUNOSUPPRESSIVE MEDICATION [Concomitant]

REACTIONS (2)
  - HYPOTENSION [None]
  - LEUKOPENIA [None]
